FAERS Safety Report 9925765 (Version 1)
Quarter: 2014Q1

REPORT INFORMATION
  Report Type: Spontaneous
  Country: ES (occurrence: ES)
  Receive Date: 20140226
  Receipt Date: 20140226
  Transmission Date: 20141002
  Serious: Yes (Other)
  Sender: FDA-Public Use
  Company Number: ES-HORIZON-VIM-0015-2014

PATIENT
  Age: 22 Year
  Sex: Female

DRUGS (2)
  1. VIMOVO [Suspect]
     Indication: TOOTHACHE
     Dosage: 500 MG/20 MG, 1 DF TWO TIMES A DAY
     Route: 048
     Dates: start: 20131121, end: 20131129
  2. AMOXICILLIN AND CLAVULANIC ACID [Suspect]
     Indication: TOOTHACHE
     Route: 048
     Dates: start: 20131121, end: 20131129

REACTIONS (1)
  - Renal colic [Not Recovered/Not Resolved]
